FAERS Safety Report 7058017-7 (Version None)
Quarter: 2010Q4

REPORT INFORMATION
  Report Type: 
  Country: None (occurrence: None)
  Receive Date: 20101022
  Receipt Date: 20101013
  Transmission Date: 20110411
  Serious: Yes (Other)
  Sender: FDA-Public Use
  Company Number: PHHY2010US53645

PATIENT
  Sex: Female

DRUGS (1)
  1. GENTEAL MODERATE LUBRICANT EYE DROPS (NVO) [Suspect]
     Indication: DRY EYE
     Dosage: UNK

REACTIONS (6)
  - CHALAZION [None]
  - ERYTHEMA OF EYELID [None]
  - EYELID OEDEMA [None]
  - HORDEOLUM [None]
  - NAUSEA [None]
  - VISION BLURRED [None]
